APPROVED DRUG PRODUCT: TACE
Active Ingredient: CHLOROTRIANISENE
Strength: 12MG
Dosage Form/Route: CAPSULE;ORAL
Application: N008102 | Product #004
Applicant: SANOFI AVENTIS US LLC
Approved: Approved Prior to Jan 1, 1982 | RLD: No | RS: No | Type: DISCN